FAERS Safety Report 11813813 (Version 2)
Quarter: 2015Q4

REPORT INFORMATION
  Report Type: Spontaneous
  Country: JP (occurrence: JP)
  Receive Date: 20151209
  Receipt Date: 20151228
  Transmission Date: 20160305
  Serious: Yes (Other)
  Sender: FDA-Public Use
  Company Number: JP-GLAXOSMITHKLINE-JP2015JPN172439

PATIENT
  Age: 47 Year
  Sex: Female
  Weight: 44 kg

DRUGS (2)
  1. ZANTAC [Suspect]
     Active Substance: RANITIDINE HYDROCHLORIDE
     Indication: ANAESTHETIC PREMEDICATION
     Dosage: 150 MG, QD
     Route: 048
     Dates: start: 20151130, end: 20151130
  2. HORIZON [Suspect]
     Active Substance: DIAZEPAM
     Indication: ANAESTHETIC PREMEDICATION
     Dosage: 5 MG, 1D
     Route: 048
     Dates: start: 20151130, end: 20151130

REACTIONS (10)
  - Rash generalised [Recovered/Resolved]
  - Urticaria [Recovered/Resolved]
  - Anaphylactic shock [Recovered/Resolved]
  - Blood pressure decreased [Recovered/Resolved]
  - Laryngeal oedema [Recovered/Resolved]
  - Face oedema [Recovered/Resolved]
  - Vomiting [Recovered/Resolved]
  - Nausea [Recovered/Resolved]
  - Dyspnoea [Recovered/Resolved]
  - Diarrhoea [Recovered/Resolved]

NARRATIVE: CASE EVENT DATE: 20151130
